FAERS Safety Report 9166370 (Version 1)
Quarter: 2013Q1

REPORT INFORMATION
  Report Type: Report from Study
  Country: FR (occurrence: FR)
  Receive Date: 20130315
  Receipt Date: 20130315
  Transmission Date: 20140127
  Serious: Yes (Death, Other)
  Sender: FDA-Public Use
  Company Number: FR-CELGENEUS-056-C4047-12111303

PATIENT
  Age: 60 Year
  Sex: Male
  Weight: 58 kg

DRUGS (5)
  1. CC-4047 [Suspect]
     Indication: PLASMA CELL MYELOMA
     Dosage: D21 OF D28
     Route: 048
     Dates: start: 20120706, end: 20121002
  2. DEXAMETHASONE [Suspect]
     Indication: PLASMA CELL MYELOMA
     Dosage: D 1-8  -15- 21
     Route: 065
  3. BACTRIM [Concomitant]
     Indication: PRODUCT USED FOR UNKNOWN INDICATION
     Dosage: 1 TABLET
     Route: 065
  4. ZELITREX [Concomitant]
     Indication: PRODUCT USED FOR UNKNOWN INDICATION
     Dosage: 1000
     Route: 065
  5. ASPEGIC [Concomitant]
     Indication: PRODUCT USED FOR UNKNOWN INDICATION
     Dosage: 160
     Route: 065

REACTIONS (3)
  - Plasma cell myeloma [Fatal]
  - Septic shock [Fatal]
  - Renal failure [Unknown]
